FAERS Safety Report 14575792 (Version 1)
Quarter: 2018Q1

REPORT INFORMATION
  Report Type: Spontaneous
  Country: US (occurrence: US)
  Receive Date: 20180227
  Receipt Date: 20180227
  Transmission Date: 20180509
  Serious: Yes (Hospitalization)
  Sender: FDA-Public Use
  Company Number: US-ROCHE-2077631

PATIENT
  Sex: Male

DRUGS (9)
  1. GLIMEPIRIDE. [Concomitant]
     Active Substance: GLIMEPIRIDE
  2. METOLAZONE. [Concomitant]
     Active Substance: METOLAZONE
  3. TOUJEO [Concomitant]
     Active Substance: INSULIN GLARGINE
  4. TOPROL XL [Concomitant]
     Active Substance: METOPROLOL SUCCINATE
  5. ESBRIET [Suspect]
     Active Substance: PIRFENIDONE
     Indication: IDIOPATHIC PULMONARY FIBROSIS
     Dosage: 3 TAB WITH MEALS
     Route: 048
     Dates: start: 20180101
  6. LASIX [Concomitant]
     Active Substance: FUROSEMIDE
  7. BETAPACE [Concomitant]
     Active Substance: SOTALOL HYDROCHLORIDE
  8. FERROUS SULFATE. [Concomitant]
     Active Substance: FERROUS SULFATE
  9. HUMALOG [Concomitant]
     Active Substance: INSULIN LISPRO

REACTIONS (2)
  - Confusional state [Recovered/Resolved]
  - Aggression [Recovered/Resolved]
